FAERS Safety Report 12611640 (Version 1)
Quarter: 2016Q3

REPORT INFORMATION
  Report Type: Spontaneous
  Country: US (occurrence: US)
  Receive Date: 20160801
  Receipt Date: 20160801
  Transmission Date: 20161109
  Serious: Yes (Other)
  Sender: FDA-Public Use
  Company Number: US-TAKEDA-2014TUS007260

PATIENT

DRUGS (2)
  1. ACTOS [Suspect]
     Active Substance: PIOGLITAZONE HYDROCHLORIDE
     Indication: TYPE 2 DIABETES MELLITUS
     Dosage: UNK
     Route: 048
     Dates: start: 2003, end: 2010
  2. DIABETA [Concomitant]
     Active Substance: GLYBURIDE
     Dosage: UNK

REACTIONS (4)
  - Large intestinal haemorrhage [Unknown]
  - Cardiomegaly [Unknown]
  - Bladder cancer [Unknown]
  - Chest pain [Unknown]
